FAERS Safety Report 8489165-2 (Version None)
Quarter: 2012Q3

REPORT INFORMATION
  Report Type: 
  Country: None (occurrence: None)
  Receive Date: 20120705
  Receipt Date: 20120626
  Transmission Date: 20120928
  Serious: Yes (Other)
  Sender: FDA-Public Use
  Company Number: JP-VERTEX PHARMACEUTICALS INC.-AE-2012-007087

PATIENT
  Age: 56 Year
  Sex: Female

DRUGS (14)
  1. RIBAVIRIN [Concomitant]
     Indication: HEPATITIS C
     Route: 048
     Dates: start: 20120327, end: 20120423
  2. PEGINTERFERON ALFA-2B [Concomitant]
     Route: 058
     Dates: start: 20120619
  3. CLOBETASOL PROPIONATE [Concomitant]
     Route: 061
  4. PEGINTERFERON ALFA-2B [Concomitant]
     Route: 058
     Dates: start: 20120501
  5. RIBAVIRIN [Concomitant]
     Route: 048
     Dates: start: 20120424
  6. PEGINTERFERON ALFA-2B [Concomitant]
     Route: 058
     Dates: start: 20120403, end: 20120403
  7. PEGINTERFERON ALFA-2B [Concomitant]
     Indication: HEPATITIS C
     Route: 058
     Dates: start: 20120327, end: 20120327
  8. PEGINTERFERON ALFA-2B [Concomitant]
     Route: 058
     Dates: start: 20120417, end: 20120417
  9. PEGINTERFERON ALFA-2B [Concomitant]
     Route: 058
     Dates: end: 20120515
  10. TELAVIC (TELAPREVIR) [Suspect]
     Indication: HEPATITIS C
     Route: 048
     Dates: start: 20120327, end: 20120618
  11. PEGINTERFERON ALFA-2B [Concomitant]
     Route: 058
     Dates: start: 20120424
  12. PEGINTERFERON ALFA-2B [Concomitant]
     Route: 058
     Dates: start: 20120522, end: 20120612
  13. PEGINTERFERON ALFA-2B [Concomitant]
     Route: 058
     Dates: start: 20120409, end: 20120409
  14. PEGINTERFERON ALFA-2B [Concomitant]
     Route: 058
     Dates: start: 20120508

REACTIONS (1)
  - NEUTROPHIL COUNT DECREASED [None]
